FAERS Safety Report 9441037 (Version 1)
Quarter: 2013Q3

REPORT INFORMATION
  Report Type: Spontaneous
  Country: US (occurrence: US)
  Receive Date: 20130805
  Receipt Date: 20130805
  Transmission Date: 20140515
  Serious: Yes (Other)
  Sender: FDA-Public Use
  Company Number: US-GLAXOSMITHKLINE-A0798147A

PATIENT
  Age: 71 Year
  Sex: Male
  Weight: 84.5 kg

DRUGS (2)
  1. AVANDIA [Suspect]
     Indication: DIABETES MELLITUS
     Dosage: 4MG TWICE PER DAY
     Route: 048
     Dates: start: 20030222, end: 20081021
  2. AVANDAMET [Suspect]
     Indication: DIABETES MELLITUS
     Dosage: 1TAB PER DAY
     Dates: start: 20041229, end: 20051128

REACTIONS (2)
  - Cerebrovascular accident [Recovered/Resolved]
  - Transient ischaemic attack [Unknown]
